FAERS Safety Report 21089339 (Version 6)
Quarter: 2025Q2

REPORT INFORMATION
  Report Type: Report from Study
  Country: US (occurrence: US)
  Receive Date: 20220715
  Receipt Date: 20250526
  Transmission Date: 20250716
  Serious: Yes (Other)
  Sender: TAKEDA
  Company Number: US-TAKEDA-2022TUS026242

PATIENT
  Sex: Female

DRUGS (20)
  1. PONATINIB [Suspect]
     Active Substance: PONATINIB
     Indication: Chronic myeloid leukaemia (in remission)
     Dosage: 45 MILLIGRAM, QD
  2. PONATINIB [Suspect]
     Active Substance: PONATINIB
     Indication: Chronic myeloid leukaemia
     Dosage: 30 MILLIGRAM, QD
  3. PONATINIB [Suspect]
     Active Substance: PONATINIB
     Dosage: 15 MILLIGRAM, QD
  4. PONATINIB [Suspect]
     Active Substance: PONATINIB
     Dosage: 10 MILLIGRAM, QD
  5. CALCIUM GLUCONATE [Concomitant]
     Active Substance: CALCIUM GLUCONATE
  6. ZINC [Concomitant]
     Active Substance: ZINC
  7. MAGNESIUM [Concomitant]
     Active Substance: MAGNESIUM
  8. COLLAGEN [Concomitant]
     Active Substance: COLLAGEN
  9. VITAMIN E [Concomitant]
     Active Substance: .ALPHA.-TOCOPHEROL
  10. OMEGA 3 [Concomitant]
     Active Substance: CAPSAICIN
  11. ESTROGENS, CONJUGATED [Concomitant]
     Active Substance: ESTROGENS, CONJUGATED
  12. TESTOSTERONE [Concomitant]
     Active Substance: TESTOSTERONE
  13. VITAMIN D3 [Concomitant]
     Active Substance: CHOLECALCIFEROL
  14. ESTRADIOL [Concomitant]
     Active Substance: ESTRADIOL
  15. ASPIRIN [Concomitant]
     Active Substance: ASPIRIN
  16. AMLODIPINE BESYLATE [Concomitant]
     Active Substance: AMLODIPINE BESYLATE
  17. CILOSTAZOL [Concomitant]
     Active Substance: CILOSTAZOL
  18. CRESTOR [Concomitant]
     Active Substance: ROSUVASTATIN CALCIUM
  19. XARELTO [Concomitant]
     Active Substance: RIVAROXABAN
  20. COENZYME Q10 [Concomitant]
     Active Substance: DIETARY SUPPLEMENT\UBIDECARENONE

REACTIONS (13)
  - Philadelphia chromosome positive [Recovered/Resolved]
  - Pancreatitis [Unknown]
  - Product dose omission issue [Unknown]
  - Off label use [Unknown]
  - Memory impairment [Unknown]
  - Hot flush [Unknown]
  - Rash pruritic [Unknown]
  - Blood pressure increased [Unknown]
  - Hypoaesthesia [Not Recovered/Not Resolved]
  - Paraesthesia [Not Recovered/Not Resolved]
  - Pain in extremity [Not Recovered/Not Resolved]
  - Rash [Unknown]
  - Peripheral arterial occlusive disease [Unknown]
